FAERS Safety Report 5607861-9 (Version None)
Quarter: 2008Q1

REPORT INFORMATION
  Report Type: 
  Country: None (occurrence: None)
  Receive Date: 20080130
  Receipt Date: 20071227
  Transmission Date: 20080703
  Serious: Yes (Other)
  Sender: FDA-Public Use
  Company Number: IT-BAYER-200718410GPV

PATIENT
  Age: 72 Year
  Sex: Male

DRUGS (3)
  1. NEXAVAR [Suspect]
     Indication: PANCREATIC CARCINOMA
     Dosage: TOTAL DAILY DOSE: 800 MG
     Route: 048
     Dates: start: 20071122, end: 20071203
  2. GEMZAR [Suspect]
     Indication: PANCREATIC CARCINOMA
     Dosage: UNIT DOSE: 1 G
     Route: 042
     Dates: start: 20071122, end: 20071122
  3. CISPLATIN [Suspect]
     Indication: PANCREATIC CARCINOMA
     Dosage: UNIT DOSE: 50 MG
     Route: 042
     Dates: start: 20071122, end: 20071122

REACTIONS (1)
  - SKIN TOXICITY [None]
